FAERS Safety Report 10505251 (Version 1)
Quarter: 2014Q3

REPORT INFORMATION
  Report Type: Spontaneous
  Country: US (occurrence: None)
  Receive Date: 20140915
  Receipt Date: 20140915
  Transmission Date: 20150326
  Serious: Yes (Other)
  Sender: FDA-Public Use
  Company Number: PHEH2013US022681

PATIENT
  Age: 75 Year
  Sex: Female

DRUGS (5)
  1. CITRACAL (CALCIUM CITRATE) [Concomitant]
     Active Substance: CALCIUM CITRATE
  2. KONSYL (PSYLLIUM HYDROPHILIC MUCILLOID) [Concomitant]
  3. COREG [Concomitant]
     Active Substance: CARVEDILOL
  4. DIOVAN [Suspect]
     Active Substance: VALSARTAN
     Dates: start: 200608
  5. EPLERENONE (EPLERENONE) [Concomitant]

REACTIONS (4)
  - Blood pressure abnormal [None]
  - Weight increased [None]
  - Sleep apnoea syndrome [None]
  - Localised oedema [None]

NARRATIVE: CASE EVENT DATE: 2008
